FAERS Safety Report 7142833-7 (Version None)
Quarter: 2010Q4

REPORT INFORMATION
  Report Type: 
  Country: None (occurrence: None)
  Receive Date: 20101207
  Receipt Date: 20101130
  Transmission Date: 20110411
  Serious: Yes (Other)
  Sender: FDA-Public Use
  Company Number: US-PFIZER INC-2004027188

PATIENT
  Sex: Male
  Weight: 64.399 kg

DRUGS (4)
  1. LIPITOR [Suspect]
     Indication: BLOOD CHOLESTEROL INCREASED
     Dosage: 20 MG, 1X/DAY
     Route: 048
     Dates: start: 20060101
  2. LIPITOR [Suspect]
     Dosage: 10 MG, DAILY
     Route: 048
     Dates: end: 20101128
  3. TOPROL-XL [Concomitant]
     Dosage: UNK
  4. ACETYLSALICYLIC ACID [Concomitant]
     Dosage: UNK

REACTIONS (11)
  - ANGINA PECTORIS [None]
  - BLOOD AMYLASE INCREASED [None]
  - BLOOD GLUCOSE INCREASED [None]
  - BLOOD TRIGLYCERIDES INCREASED [None]
  - CONSTIPATION [None]
  - CORONARY ARTERY OCCLUSION [None]
  - LIPASE INCREASED [None]
  - MUSCLE ATROPHY [None]
  - MUSCULAR WEAKNESS [None]
  - PARAESTHESIA [None]
  - WEIGHT DECREASED [None]
